FAERS Safety Report 9226199 (Version 4)
Quarter: 2013Q4

REPORT INFORMATION
  Report Type: Spontaneous
  Country: JP (occurrence: JP)
  Receive Date: 20130411
  Receipt Date: 20131010
  Transmission Date: 20140711
  Serious: Yes (Hospitalization)
  Sender: FDA-Public Use
  Company Number: JP-ELI_LILLY_AND_COMPANY-JP201304001536

PATIENT
  Age: 50 Year
  Sex: Female
  Weight: 40 kg

DRUGS (12)
  1. FORTEO [Suspect]
     Indication: OSTEOPOROSIS
     Dosage: 20 UG, QD
     Route: 058
     Dates: start: 20120822, end: 20130318
  2. LASIX [Concomitant]
     Dosage: 20 MG, QD
     Route: 048
  3. PARIET [Concomitant]
     Dosage: 10 MG, QD
     Route: 048
  4. FAROM [Concomitant]
     Dosage: 200 MG, TID
     Route: 048
  5. VASOLAN [Concomitant]
     Dosage: 40 MG, TID
     Route: 048
  6. CLARITH [Concomitant]
     Dosage: 400 MG, BID
     Route: 048
  7. ITRACONAZOLE [Concomitant]
     Dosage: 200 MG, BID
     Route: 048
  8. FERROMIA [Concomitant]
     Dosage: 50 MG, BID
     Route: 048
  9. TAMBOCOR [Concomitant]
     Dosage: 50 MG, BID
     Route: 048
  10. BAKTAR [Concomitant]
     Dosage: 2 DF, QD
     Route: 048
  11. PREDONINE [Concomitant]
     Dosage: 5 MG, QD
     Route: 048
  12. WARFARIN [Concomitant]
     Dosage: 1.5 MG, QD
     Route: 048

REACTIONS (2)
  - Atypical mycobacterial infection [Unknown]
  - Spinal column stenosis [Not Recovered/Not Resolved]
